FAERS Safety Report 14567165 (Version 1)
Quarter: 2018Q1

REPORT INFORMATION
  Report Type: Spontaneous
  Country: US (occurrence: US)
  Receive Date: 20180223
  Receipt Date: 20180223
  Transmission Date: 20180509
  Serious: No
  Sender: FDA-Public Use
  Company Number: US-ASTRAZENECA-2018SE20774

PATIENT
  Age: 22067 Day
  Sex: Female
  Weight: 65.8 kg

DRUGS (7)
  1. CRESTOR [Suspect]
     Active Substance: ROSUVASTATIN CALCIUM
     Indication: BLOOD CHOLESTEROL ABNORMAL
     Route: 048
     Dates: start: 20180208
  2. CRESTOR [Suspect]
     Active Substance: ROSUVASTATIN CALCIUM
     Indication: BLOOD CHOLESTEROL ABNORMAL
     Route: 048
  3. ROSUVASTATIN. [Suspect]
     Active Substance: ROSUVASTATIN
     Indication: BLOOD CHOLESTEROL ABNORMAL
     Route: 048
     Dates: start: 2017, end: 20171214
  4. ASPRIN [Concomitant]
     Active Substance: ASPIRIN
  5. ATENOLOL. [Suspect]
     Active Substance: ATENOLOL
     Indication: SYNCOPE
     Route: 048
     Dates: start: 1985
  6. ZOLOFT [Concomitant]
     Active Substance: SERTRALINE HYDROCHLORIDE
     Indication: SYNCOPE
     Route: 048
  7. VITAMINS NOS [Concomitant]
     Active Substance: VITAMINS

REACTIONS (11)
  - Incoherent [Unknown]
  - Hallucination [Unknown]
  - Intentional product misuse [Unknown]
  - Blood triglycerides increased [Unknown]
  - Adverse drug reaction [Unknown]
  - Therapy cessation [Unknown]
  - Blood cholesterol increased [Unknown]
  - Amnesia [Unknown]
  - Product substitution issue [Unknown]
  - Blood test abnormal [Unknown]
  - Panic reaction [Unknown]

NARRATIVE: CASE EVENT DATE: 20171214
